FAERS Safety Report 9528132 (Version 1)
Quarter: 2013Q1

REPORT INFORMATION
  Report Type: Spontaneous
  Country: US (occurrence: None)
  Receive Date: 20130314
  Receipt Date: 20130314
  Transmission Date: 20140127
  Serious: No
  Sender: FDA-Public Use
  Company Number: 1212USA010813

PATIENT
  Age: 74 Year
  Sex: Female

DRUGS (8)
  1. VICTRELIS (BOCEPREVIR) CAPSULE [Suspect]
     Indication: CHRONIC HEPATITIS C
     Dosage: 800 MG, TID, ORAL
     Route: 048
  2. PEGASYS (PEGINTERFERON ALFA-2A) [Suspect]
     Dosage: 180 MICROGRAM, QW, SUBCUTANEOUS
     Route: 058
  3. RIBASPHERE (RIBAVIRIN) [Suspect]
     Dosage: 400 MG IN MORNING, 200 MG IN EVENING, ORAL
     Route: 048
  4. SINGULAR (MONTELUKAST SODIUM)  TABLET [Concomitant]
  5. DIOVAN (VALSARTAN ) [Concomitant]
  6. ASACOL (MESALAMINE) [Concomitant]
  7. ADVAIR (FLUTICASONE PROPIONATE, SALMETEROL XINAFOATE) [Concomitant]
  8. ALBUTEROL (ALBUTEROL) [Concomitant]

REACTIONS (1)
  - Adverse event [None]
